FAERS Safety Report 8178703-5 (Version None)
Quarter: 2012Q1

REPORT INFORMATION
  Report Type: 
  Country: None (occurrence: None)
  Receive Date: 20120301
  Receipt Date: 20120221
  Transmission Date: 20120608
  Serious: Yes (Other)
  Sender: FDA-Public Use
  Company Number: JP-ASTRAZENECA-2012SE12411

PATIENT
  Age: 75 Year
  Sex: Male

DRUGS (2)
  1. ONON [Suspect]
     Dosage: DOSE UNKNOWN
     Route: 048
     Dates: start: 20120101
  2. CRESTOR [Suspect]
     Route: 048
     Dates: start: 20110406

REACTIONS (2)
  - MALAISE [None]
  - BLOOD CREATINE PHOSPHOKINASE INCREASED [None]
